FAERS Safety Report 26117190 (Version 2)
Quarter: 2025Q4

REPORT INFORMATION
  Report Type: Spontaneous
  Country: US (occurrence: US)
  Receive Date: 20251203
  Receipt Date: 20251208
  Transmission Date: 20260118
  Serious: Yes (Life-Threatening, Hospitalization, Other)
  Sender: PFIZER
  Company Number: US-PFIZER INC-PV202500138934

PATIENT
  Sex: Male

DRUGS (6)
  1. LORAZEPAM [Suspect]
     Active Substance: LORAZEPAM
     Indication: Ophthalmoplegia
     Dosage: 16 MG
     Route: 042
  2. LORAZEPAM [Suspect]
     Active Substance: LORAZEPAM
     Indication: Insomnia
  3. LORAZEPAM [Suspect]
     Active Substance: LORAZEPAM
     Indication: Tachypnoea
  4. LORAZEPAM [Suspect]
     Active Substance: LORAZEPAM
     Indication: Parkinsonism
  5. LORAZEPAM [Suspect]
     Active Substance: LORAZEPAM
     Indication: Locked-in syndrome
  6. LORAZEPAM [Suspect]
     Active Substance: LORAZEPAM
     Indication: Encephalitis

REACTIONS (2)
  - Drug ineffective for unapproved indication [Unknown]
  - Off label use [Unknown]
